FAERS Safety Report 6131750-7 (Version None)
Quarter: 2009Q1

REPORT INFORMATION
  Report Type: 
  Country: None (occurrence: None)
  Receive Date: 20090325
  Receipt Date: 20090313
  Transmission Date: 20090719
  Serious: Yes (Hospitalization)
  Sender: FDA-Public Use
  Company Number: NL-ROCHE-622188

PATIENT
  Weight: 50 kg

DRUGS (9)
  1. CAPECITABINE [Suspect]
     Indication: GASTRIC CANCER
     Dosage: LAST DOSE PRIOR TO SAE: 04 MARCH 2009. DISCONTINUED IN RESPONSE TO SAE. DOSE AND FREQ. PER PROTOCOL.
     Route: 065
     Dates: start: 20080926, end: 20090309
  2. EPIRUBICIN [Suspect]
     Indication: GASTRIC CANCER
     Dosage: LAST DOSE PRIOR TO SAE: 04 MARCH 2009. DISCONTINUED IN RESPONSE TO SAE.
     Route: 065
     Dates: start: 20080926, end: 20090309
  3. CISPLATIN [Suspect]
     Indication: GASTRIC CANCER
     Dosage: LAST DOSE PRIOR TO SAE: 04 MARCH 2009. DISCONTINUED IN RESPONSE TO SAE.
     Route: 065
     Dates: start: 20080926, end: 20090309
  4. SOTALOL HYDROCHLORIDE [Concomitant]
     Dosage: REPORTED ^60^ MG 2DD 0.5
     Route: 048
     Dates: start: 20090310
  5. SUCRALFAAT [Concomitant]
     Dosage: REPORTED; 1 G 2 DD 1.
     Route: 048
     Dates: start: 20090310
  6. CHLORHEXIDINE GLUCONATE [Concomitant]
     Dosage: REPORTED: 15 ML 4 DD.
     Route: 048
     Dates: start: 20090310
  7. ACENOCOUMAROL [Concomitant]
     Dosage: REPORTED: VARIABLE.
     Route: 048
     Dates: start: 20090310
  8. LACTULOSE [Concomitant]
     Dosage: REPORTED: 15 ML 2 DD.
     Route: 048
     Dates: start: 20090310
  9. PARACETAMOL [Concomitant]
     Dosage: REPORTED: 1000 MG 4 DD 1.
     Route: 054
     Dates: start: 20090310

REACTIONS (8)
  - ANOREXIA [None]
  - BLOOD BILIRUBIN INCREASED [None]
  - CONSTIPATION [None]
  - DYSPEPSIA [None]
  - GASTRITIS [None]
  - HAEMOGLOBIN DECREASED [None]
  - HICCUPS [None]
  - NAUSEA [None]
